FAERS Safety Report 8250639-0 (Version None)
Quarter: 2012Q2

REPORT INFORMATION
  Report Type: 
  Country: None (occurrence: None)
  Receive Date: 20120402
  Receipt Date: 20120309
  Transmission Date: 20120825
  Serious: Yes (Hospitalization)
  Sender: FDA-Public Use
  Company Number: DE-ROCHE-1044353

PATIENT
  Sex: Male
  Weight: 76.2 kg

DRUGS (7)
  1. ERYTHROMYCIN [Concomitant]
     Dosage: DRUG REPORTED AS:ERYTHROMYCIN/LINOLA EMULSION
  2. BENZAKNEN [Concomitant]
  3. VISMODEGIB [Suspect]
     Indication: BASAL CELL CARCINOMA
     Dosage: DATE OF LAST DOSE PRIOR TO SAE:25/FEB/2012
     Dates: start: 20100209
  4. C-1000 [Concomitant]
     Dosage: ACID FREE C-1000 SR
  5. VITAMIN COMPLEX [Concomitant]
  6. SELEN [Concomitant]
  7. BUSCOPAN PLUS [Concomitant]

REACTIONS (1)
  - SYNCOPE [None]
